FAERS Safety Report 6467541-7 (Version None)
Quarter: 2009Q4

REPORT INFORMATION
  Report Type: 
  Country: None (occurrence: None)
  Receive Date: 20091130
  Receipt Date: 20091110
  Transmission Date: 20100525
  Serious: Yes (Other)
  Sender: FDA-Public Use
  Company Number: AUR-APL-2009-01289

PATIENT
  Age: 72 Year
  Sex: Female

DRUGS (12)
  1. LISINOPRIL AND HYDROCHLOROTHIAZIDE [Suspect]
  2. MULTAQ [Suspect]
     Indication: ATRIAL FIBRILLATION
     Dosage: 1 TABLET - BID - ORAL
     Route: 048
     Dates: start: 20091022
  3. NORVASC [Suspect]
     Indication: HYPERTENSION
  4. WARFARIN SODIUM [Suspect]
     Indication: ATRIAL FIBRILLATION
  5. PREDNISONE [Suspect]
  6. ACETYLSALICYLIC ACID [Concomitant]
  7. CALCIUM [Concomitant]
  8. GABAPENTIN [Concomitant]
  9. CINNAMON [Concomitant]
  10. METFORMIN [Concomitant]
  11. FISH OIL [Concomitant]
  12. MULTI-VITAMIN [Concomitant]

REACTIONS (7)
  - BLOOD PRESSURE DIASTOLIC DECREASED [None]
  - CONFUSIONAL STATE [None]
  - DRUG INTERACTION [None]
  - FATIGUE [None]
  - INTERNATIONAL NORMALISED RATIO INCREASED [None]
  - MEMORY IMPAIRMENT [None]
  - MENTAL IMPAIRMENT [None]
